FAERS Safety Report 9643340 (Version 1)
Quarter: 2013Q4

REPORT INFORMATION
  Report Type: Report from Study
  Country: CA (occurrence: CA)
  Receive Date: 20131024
  Receipt Date: 20131024
  Transmission Date: 20140711
  Serious: Yes (Other)
  Sender: FDA-Public Use
  Company Number: CA-JNJFOC-20131010881

PATIENT
  Age: 32 Year
  Sex: Female
  Weight: 40 kg

DRUGS (4)
  1. REMICADE [Suspect]
     Indication: COLITIS ULCERATIVE
     Route: 042
     Dates: start: 20111123
  2. TYLENOL [Concomitant]
     Indication: PREMEDICATION
     Route: 048
  3. BENADRYL [Concomitant]
     Indication: PREMEDICATION
     Route: 048
  4. SOLU MEDROL [Concomitant]
     Indication: PREMEDICATION
     Route: 042

REACTIONS (1)
  - Rectal cancer [Unknown]
